FAERS Safety Report 24184678 (Version 1)
Quarter: 2024Q3

REPORT INFORMATION
  Report Type: Spontaneous
  Country: US (occurrence: None)
  Receive Date: 20240807
  Receipt Date: 20240807
  Transmission Date: 20241017
  Serious: No
  Sender: Public
  Company Number: None

PATIENT
  Age: 50 Year
  Sex: Female
  Weight: 52.83 kg

DRUGS (21)
  1. COSENTYX [Suspect]
     Active Substance: SECUKINUMAB
     Indication: Arthritis
     Route: 058
  2. Albuterol HFA INH [Concomitant]
  3. ALENDRONATE [Concomitant]
     Active Substance: ALENDRONATE SODIUM
  4. AMITRIPTYLINE [Concomitant]
     Active Substance: AMITRIPTYLINE
  5. AMLODIPINE [Concomitant]
     Active Substance: AMLODIPINE BESYLATE
  6. CELECOXIB [Concomitant]
     Active Substance: CELECOXIB
  7. chlorhexidine 0.12 % oral [Concomitant]
  8. CITALOPRAM [Concomitant]
     Active Substance: CITALOPRAM\CITALOPRAM HYDROBROMIDE
  9. dexamethasone 0.5mg/5ml oral solution [Concomitant]
  10. DIAZEPAM [Concomitant]
     Active Substance: DIAZEPAM
  11. diclofenac sodium 50mg [Concomitant]
  12. DULOXETINE [Concomitant]
     Active Substance: DULOXETINE
  13. HUMIRA [Concomitant]
     Active Substance: ADALIMUMAB
  14. HYDROXYCHLOROQUINE [Concomitant]
     Active Substance: HYDROXYCHLOROQUINE
  15. hydroxyzine 50 mg [Concomitant]
  16. IBANDRONATE SODIUM [Concomitant]
     Active Substance: IBANDRONATE SODIUM
  17. LEFLUNOMIDE [Concomitant]
     Active Substance: LEFLUNOMIDE
  18. LORAZEPAM [Concomitant]
     Active Substance: LORAZEPAM
  19. mag-oxide 400mg [Concomitant]
  20. MELOXICAM [Concomitant]
     Active Substance: MELOXICAM
  21. methotrexate 1gm inj [Concomitant]

REACTIONS (1)
  - Therapy non-responder [None]

NARRATIVE: CASE EVENT DATE: 20240806
